FAERS Safety Report 5373820-7 (Version None)
Quarter: 2007Q2

REPORT INFORMATION
  Report Type: 
  Country: None (occurrence: None)
  Receive Date: 20070627
  Receipt Date: 20070322
  Transmission Date: 20071010
  Serious: Yes (Hospitalization)
  Sender: FDA-Public Use
  Company Number: 488886

PATIENT
  Sex: Female

DRUGS (2)
  1. XELODA [Suspect]
     Indication: COLON CANCER
     Dosage: 1500 MG 2 PER DAY ORAL
     Route: 048
     Dates: start: 20061015
  2. OXALIPLATIN [Concomitant]

REACTIONS (3)
  - DIARRHOEA [None]
  - PNEUMONIA [None]
  - TEMPERATURE INTOLERANCE [None]
